FAERS Safety Report 11059958 (Version 1)
Quarter: 2015Q2

REPORT INFORMATION
  Report Type: Spontaneous
  Country: US (occurrence: US)
  Receive Date: 20150423
  Receipt Date: 20150423
  Transmission Date: 20150821
  Serious: Yes (Death)
  Sender: FDA-Public Use
  Company Number: US-CIPLA LTD.-2015US03345

PATIENT

DRUGS (5)
  1. BUPROPION [Suspect]
     Active Substance: BUPROPION
  2. LISINOPRIL. [Suspect]
     Active Substance: LISINOPRIL
  3. ACETAMINOPHEN. [Suspect]
     Active Substance: ACETAMINOPHEN
  4. AMLODIPINE [Suspect]
     Active Substance: AMLODIPINE BESYLATE
  5. QUETIAPINE [Suspect]
     Active Substance: QUETIAPINE

REACTIONS (1)
  - Death [Fatal]
